FAERS Safety Report 8373201-8 (Version None)
Quarter: 2012Q2

REPORT INFORMATION
  Report Type: 
  Country: None (occurrence: None)
  Receive Date: 20120521
  Receipt Date: 20120517
  Transmission Date: 20120825
  Serious: Yes (Other)
  Sender: FDA-Public Use
  Company Number: IT-PFIZER INC-2012074237

PATIENT
  Age: 68 Year
  Sex: Male

DRUGS (4)
  1. SUTENT [Suspect]
     Dosage: 50 MG, ONCE DAILY (FOR TWO CONSECUTIVE WEEKS AND ONE WEEK STOP)
     Route: 048
     Dates: start: 20110526, end: 20111207
  2. BISOPROLOL [Concomitant]
     Indication: HYPERTENSION
     Dosage: 2.5 MG, 1X/DAY
  3. ASPIRIN [Concomitant]
     Indication: HYPERTENSION
     Dosage: UNK, 1 TABLET DAILY
  4. IRBESARTAN [Concomitant]
     Indication: HYPERTENSION
     Dosage: 150 MG, UNK

REACTIONS (1)
  - PNEUMOTHORAX [None]
